FAERS Safety Report 24073280 (Version 3)
Quarter: 2024Q4

REPORT INFORMATION
  Report Type: Spontaneous
  Country: US (occurrence: US)
  Receive Date: 20240710
  Receipt Date: 20241203
  Transmission Date: 20250114
  Serious: No
  Sender: SANOFI AVENTIS
  Company Number: US-SA-SAC20240708000079

PATIENT
  Sex: Female

DRUGS (7)
  1. DUPIXENT [Suspect]
     Active Substance: DUPILUMAB
     Indication: Nasal polyps
     Dosage: 300 MG, QOW
     Route: 058
     Dates: start: 20231012
  2. DUPIXENT [Suspect]
     Active Substance: DUPILUMAB
     Indication: Asthma
  3. DESONIDE [Concomitant]
     Active Substance: DESONIDE
     Dosage: UNK
  4. FLUCONAZOLE [Concomitant]
     Active Substance: FLUCONAZOLE
     Dosage: UNK
  5. NUCALA [Concomitant]
     Active Substance: MEPOLIZUMAB
     Dosage: UNK
  6. OTEZLA [Concomitant]
     Active Substance: APREMILAST
     Dosage: UNK
  7. XHANCE [Concomitant]
     Active Substance: FLUTICASONE PROPIONATE
     Dosage: UNK

REACTIONS (3)
  - Aphthous ulcer [Not Recovered/Not Resolved]
  - Acne [Unknown]
  - Therapeutic response decreased [Unknown]
